FAERS Safety Report 11769329 (Version 2)
Quarter: 2015Q4

REPORT INFORMATION
  Report Type: Spontaneous
  Country: GB (occurrence: GB)
  Receive Date: 20151123
  Receipt Date: 20151207
  Transmission Date: 20160304
  Serious: Yes (Other)
  Sender: FDA-Public Use
  Company Number: ALCN2015GB007172

PATIENT
  Age: 89 Year
  Sex: Female
  Weight: 50.8 kg

DRUGS (2)
  1. DORZOLAMIDE [Suspect]
     Active Substance: DORZOLAMIDE
     Dosage: 1 DF, Q12H
     Route: 047
     Dates: start: 20150414, end: 20150611
  2. BRINZOLAMIDE [Suspect]
     Active Substance: BRINZOLAMIDE
     Indication: GLAUCOMA
     Dosage: 1 DF, Q12H
     Route: 047
     Dates: start: 20150611, end: 20151001

REACTIONS (3)
  - Epistaxis [Recovered/Resolved]
  - Malaise [Recovered/Resolved]
  - Dyspnoea [Recovered/Resolved]
